FAERS Safety Report 6103222-7 (Version None)
Quarter: 2009Q1

REPORT INFORMATION
  Report Type: 
  Country: None (occurrence: None)
  Receive Date: 20090305
  Receipt Date: 20090224
  Transmission Date: 20090719
  Serious: Yes (Death)
  Sender: FDA-Public Use
  Company Number: US-PURDUE-USA_2009_0037161

PATIENT
  Sex: Female

DRUGS (4)
  1. OXYCONTIN [Suspect]
     Indication: DRUG USE FOR UNKNOWN INDICATION
  2. ANTIDEPRESSANTS [Suspect]
     Indication: DRUG USE FOR UNKNOWN INDICATION
  3. XANAX [Concomitant]
  4. CODEINE [Concomitant]

REACTIONS (1)
  - MULTIPLE DRUG OVERDOSE INTENTIONAL [None]
